FAERS Safety Report 10731852 (Version 1)
Quarter: 2015Q1

REPORT INFORMATION
  Report Type: Spontaneous
  Country: FR (occurrence: None)
  Receive Date: 20150120
  Receipt Date: 20150120
  Transmission Date: 20150721
  Serious: Yes (Death)
  Sender: FDA-Public Use
  Company Number: INT_00659_2015

PATIENT

DRUGS (5)
  1. GRANULOCYTE COLONY STIMULATING FACTOR (GRANULOCYTE COLONY STIMULATING FACTOR) [Suspect]
     Active Substance: FILGRASTIM
     Indication: SEMINOMA
     Dosage: 300 MG PER DAY, FOR 7 DAYS, STARTING ON DAY 7, EVERY 3 WEEKS, FOR 4 CYCLES
  2. ETOPOSIDE (ETOPOSIDE) [Suspect]
     Active Substance: ETOPOSIDE
     Indication: SEMINOMA
     Dosage: 75 MG/M2 PER DAY, FOR 5 DAYS, REPEATED EVERY 3 WEEKS, FOR 4 CYCLE
  3. MESNA. [Concomitant]
     Active Substance: MESNA
  4. CISPLATIN (CISPLATIN) (HQ SPECIALTY) [Suspect]
     Active Substance: CISPLATIN
     Indication: SEMINOMA
     Dosage: 20 MG/M2 PER DAY, FOR 5 DAYS, REPEATED EVERY 3 WEEKS, FOR 4 CYCLE
  5. IFOSFAMIDE (IFOSFAMIDE) [Suspect]
     Active Substance: IFOSFAMIDE
     Indication: SEMINOMA
     Dosage: 1.2 G/M2 PER DAY, FOR 5 DAYS, REPEATED EVERY 3 WEEKS, FOR 4 CYCLES

REACTIONS (1)
  - Septic shock [None]
